FAERS Safety Report 8417699-5 (Version None)
Quarter: 2012Q2

REPORT INFORMATION
  Report Type: 
  Country: None (occurrence: None)
  Receive Date: 20120607
  Receipt Date: 20120529
  Transmission Date: 20120825
  Serious: Yes (Hospitalization)
  Sender: FDA-Public Use
  Company Number: CA-PAR PHARMACEUTICAL, INC-2012SCPR004421

PATIENT

DRUGS (2)
  1. METRONIDAZOLE [Suspect]
     Indication: BILE DUCT STONE
     Dosage: 500 MG,
  2. METRONIDAZOLE [Suspect]
     Dosage: 250 MG, SINGLE
     Route: 048

REACTIONS (1)
  - DRUG RASH WITH EOSINOPHILIA AND SYSTEMIC SYMPTOMS [None]
